FAERS Safety Report 17882296 (Version 1)
Quarter: 2020Q2

REPORT INFORMATION
  Report Type: Spontaneous
  Country: US (occurrence: US)
  Receive Date: 20200610
  Receipt Date: 20200610
  Transmission Date: 20200714
  Serious: No
  Sender: FDA-Public Use
  Company Number: US-TEVA-2020-US-1246891

PATIENT
  Age: 65 Year
  Sex: Female

DRUGS (4)
  1. COPAXONE [Suspect]
     Active Substance: GLATIRAMER ACETATE
     Indication: MULTIPLE SCLEROSIS
     Route: 058
     Dates: start: 20200420
  2. PROVIGIL TAB 200MG [Concomitant]
     Route: 065
  3. FLUOXETINE CAP 10MG [Concomitant]
     Route: 065
  4. TEMAZEPAM CAP 15MG [Concomitant]
     Route: 065

REACTIONS (1)
  - Fall [Unknown]

NARRATIVE: CASE EVENT DATE: 20200602
